FAERS Safety Report 6275834-1 (Version None)
Quarter: 2009Q3

REPORT INFORMATION
  Report Type: 
  Country: None (occurrence: None)
  Receive Date: 20090721
  Receipt Date: 20090710
  Transmission Date: 20100115
  Serious: Yes (Death, Other)
  Sender: FDA-Public Use
  Company Number: NL-GENENTECH-287085

PATIENT

DRUGS (6)
  1. ACTIVASE [Suspect]
     Indication: ISCHAEMIC STROKE
     Dosage: UNK
     Route: 042
  2. DIPYRIDAMOLE [Suspect]
     Indication: ANTIPLATELET THERAPY
     Dosage: 200 MG, UNK
  3. ASPIRIN [Suspect]
     Indication: ANTIPLATELET THERAPY
     Dosage: 25 MG, UNK
  4. ASPIRIN [Suspect]
     Dosage: 30-50 MG, UNK
  5. ASPIRIN [Suspect]
     Dosage: 80-100 MG, UNK
  6. STATIN (UNK INGREDIENTS) [Concomitant]
     Indication: HYPERLIPIDAEMIA
     Dosage: UNK

REACTIONS (2)
  - CEREBRAL HAEMORRHAGE [None]
  - DEATH [None]
